FAERS Safety Report 7022287-1 (Version None)
Quarter: 2010Q3

REPORT INFORMATION
  Report Type: 
  Country: None (occurrence: None)
  Receive Date: 20100930
  Receipt Date: 20100921
  Transmission Date: 20110219
  Serious: Yes (Hospitalization)
  Sender: FDA-Public Use
  Company Number: FR-WYE-H17745810

PATIENT
  Age: 70 Year
  Sex: Female

DRUGS (10)
  1. CORDARONE [Suspect]
     Route: 048
     Dates: start: 20090101, end: 20090101
  2. CORDARONE [Suspect]
     Route: 048
     Dates: start: 20090101, end: 20100724
  3. FORMOTEROL FUMARATE [Concomitant]
  4. DIGOXIN [Concomitant]
  5. PRISTINAMYCIN [Concomitant]
     Dosage: DOSE NOT PROVIDED
     Dates: start: 20100501
  6. SPECIAFOLDINE [Concomitant]
  7. COUMADIN [Concomitant]
  8. MOXIFLOXACIN [Concomitant]
     Dosage: DOSE NOT PROVIDED
     Dates: start: 20100501
  9. BUDESONIDE [Concomitant]
  10. BACTRIM [Concomitant]

REACTIONS (3)
  - ESCHERICHIA SEPSIS [None]
  - HYPERTHYROIDISM [None]
  - INTERSTITIAL LUNG DISEASE [None]
